FAERS Safety Report 8784795 (Version 2)
Quarter: 2013Q1

REPORT INFORMATION
  Report Type: Spontaneous
  Country: TR (occurrence: None)
  Receive Date: 20120831
  Receipt Date: 20121219
  Transmission Date: 20140127
  Serious: Yes (Life-Threatening)
  Sender: FDA-Public Use
  Company Number: ACO_31686_2012

PATIENT
  Sex: Female

DRUGS (7)
  1. FAMPYRA (DALFAMPRIDINE) TABLET, 10 MG [Suspect]
     Indication: GAIT DISTURBANCE
     Route: 048
     Dates: start: 20120802, end: 20120812
  2. LIORESAL (BACLOFEN) [Concomitant]
  3. PK-MERZ (AMANTADINE SULFATE) [Concomitant]
  4. IMURAN (AZATHIOPRINE) [Concomitant]
  5. BACLOFEN (BACLOFEN) [Concomitant]
  6. AMANTADINE  (AMANTADINE) [Concomitant]
  7. AZATHIOPRINE (AZATHIOPRINE) [Concomitant]

REACTIONS (3)
  - Convulsion [None]
  - Urinary incontinence [None]
  - Postictal state [None]
